FAERS Safety Report 7742419-7 (Version None)
Quarter: 2011Q3

REPORT INFORMATION
  Report Type: 
  Country: None (occurrence: None)
  Receive Date: 20110912
  Receipt Date: 20110906
  Transmission Date: 20111222
  Serious: Yes (Hospitalization)
  Sender: FDA-Public Use
  Company Number: NL-TEVA-299659ISR

PATIENT
  Sex: Male

DRUGS (12)
  1. HYDROCHLOROTHIAZIDE [Concomitant]
     Dosage: 25 MILLIGRAM;
  2. ALLOPURINOL [Concomitant]
     Dosage: 300 MILLIGRAM;
  3. SLOW-K [Concomitant]
  4. BUMETANIDE [Concomitant]
     Dosage: 10 MILLIGRAM;
  5. TRIAMCINOLONE ACETONIDE [Concomitant]
     Dates: start: 20110801
  6. SPIRIVA [Concomitant]
     Dosage: 18 MICROGRAM;
  7. SINTROM [Concomitant]
     Dates: start: 20110621
  8. FERROFUMARAT [Concomitant]
     Dosage: 400 MILLIGRAM;
     Dates: start: 20110704
  9. VASELINELANETTE CREME (LANETTE WAS SX,PARAFFINE, VLOEIBAAR, PROPYLEENG [Concomitant]
  10. SPIRONOLACTONE [Concomitant]
     Dosage: 12.5 MILLIGRAM;
  11. ALFACALCIDOL [Concomitant]
     Dosage: .25 MICROGRAM;
  12. DOXYCYCLINE [Suspect]
     Indication: INFECTION
     Dosage: 100 MILLIGRAM;
     Dates: start: 20110801

REACTIONS (2)
  - WEIGHT INCREASED [None]
  - OEDEMA [None]
